FAERS Safety Report 6779498-X (Version None)
Quarter: 2010Q2

REPORT INFORMATION
  Report Type: 
  Country: None (occurrence: None)
  Receive Date: 20100618
  Receipt Date: 20100610
  Transmission Date: 20101027
  Serious: Yes (Death, Other)
  Sender: FDA-Public Use
  Company Number: GB-PFIZER INC-2009283399

PATIENT
  Age: 52 Year
  Sex: Female

DRUGS (11)
  1. CYCLOPHOSPHAMIDE [Suspect]
  2. EPIRUBICIN HYDROCHLORIDE [Suspect]
  3. CLOZARIL [Suspect]
     Indication: SCHIZOPHRENIA
     Dosage: 400 MG, 1X/DAY
     Route: 048
     Dates: start: 20030909, end: 20060828
  4. CLOZARIL [Suspect]
     Dosage: 400 MG, 1X/DAY
     Dates: start: 20061009
  5. DOCETAXEL [Suspect]
  6. AMITRIPTYLINE [Concomitant]
     Indication: DEPRESSION
     Dosage: 75 MG, 2X/DAY
     Route: 048
  7. ASACOL [Concomitant]
     Indication: GASTROINTESTINAL DISORDER
     Dosage: 400 MG, UNK
     Route: 048
  8. CLONAZEPAM [Concomitant]
     Indication: ANXIETY
     Dosage: 0.5 MG, 1X/DAY
     Route: 048
  9. ESCITALOPRAM [Concomitant]
     Indication: DEPRESSION
     Dosage: 25 MG, 1X/DAY
     Route: 048
  10. EZETIMIBE [Concomitant]
     Indication: HYPERCHOLESTEROLAEMIA
     Dosage: 10 MG, UNK
     Route: 048
  11. MESALAZINE [Concomitant]
     Indication: GASTROINTESTINAL DISORDER
     Dosage: 400 MG, 2X/DAY
     Route: 048

REACTIONS (9)
  - BREAST CANCER [None]
  - CIRCULATORY COLLAPSE [None]
  - DIABETES MELLITUS [None]
  - HYPOGLYCAEMIA [None]
  - LYMPHOCYTE COUNT DECREASED [None]
  - MASTECTOMY [None]
  - PNEUMONIA [None]
  - TREATMENT NONCOMPLIANCE [None]
  - WHITE BLOOD CELL COUNT DECREASED [None]
